FAERS Safety Report 25246550 (Version 1)
Quarter: 2025Q2

REPORT INFORMATION
  Report Type: Spontaneous
  Country: US (occurrence: US)
  Receive Date: 20250428
  Receipt Date: 20250428
  Transmission Date: 20250717
  Serious: No
  Sender: INNOGENIX, LLC
  Company Number: US-Innogenix, LLC-2175643

PATIENT
  Sex: Female

DRUGS (1)
  1. METRONIDAZOLE [Suspect]
     Active Substance: METRONIDAZOLE
     Indication: Infection

REACTIONS (2)
  - Fatigue [Unknown]
  - Exposure during pregnancy [Unknown]
